FAERS Safety Report 11191364 (Version 1)
Quarter: 2015Q2

REPORT INFORMATION
  Report Type: Report from Study
  Country: NL (occurrence: NL)
  Receive Date: 20150616
  Receipt Date: 20150616
  Transmission Date: 20150821
  Serious: Yes (Other)
  Sender: FDA-Public Use
  Company Number: PHHY2015NL069662

PATIENT
  Sex: Female

DRUGS (3)
  1. ACLASTA [Suspect]
     Active Substance: ZOLEDRONIC ACID
     Indication: OSTEOPOROSIS
     Dosage: 5 MG, EVERY 52 WEEKS
     Route: 042
     Dates: start: 20100705
  2. ACLASTA [Suspect]
     Active Substance: ZOLEDRONIC ACID
     Dosage: 5 MG, EVERY 52 WEEKS
     Route: 042
     Dates: start: 20120612
  3. ACLASTA [Suspect]
     Active Substance: ZOLEDRONIC ACID
     Dosage: 5 MG, EVERY 52 WEEKS
     Route: 042
     Dates: start: 20130624

REACTIONS (1)
  - Thoracic vertebral fracture [Unknown]
